FAERS Safety Report 11170745 (Version 1)
Quarter: 2015Q2

REPORT INFORMATION
  Report Type: Spontaneous
  Country: US (occurrence: None)
  Receive Date: 20150515
  Receipt Date: 20150515
  Transmission Date: 20150821
  Serious: Yes (Hospitalization, Other)
  Sender: FDA-Public Use
  Company Number: 054914

PATIENT
  Age: 30 Year
  Sex: Female

DRUGS (1)
  1. CIMZIA [Suspect]
     Active Substance: CERTOLIZUMAB PEGOL
     Indication: CROHN^S DISEASE
     Dosage: 400 MG, EV 4 WEEKS, SUBCUTANEOUS
     Route: 058
     Dates: start: 20100315, end: 2010

REACTIONS (4)
  - Inappropriate schedule of drug administration [None]
  - Urinary tract infection [None]
  - Kidney infection [None]
  - Pyelonephritis [None]

NARRATIVE: CASE EVENT DATE: 20100315
